FAERS Safety Report 17740075 (Version 1)
Quarter: 2020Q2

REPORT INFORMATION
  Report Type: Spontaneous
  Country: US (occurrence: US)
  Receive Date: 20200503
  Receipt Date: 20200503
  Transmission Date: 20200714
  Serious: Yes (Disabling)
  Sender: FDA-Public Use
  Company Number: None

PATIENT
  Age: 39 Year
  Sex: Female
  Weight: 47.25 kg

DRUGS (12)
  1. OMEGA 3 [Concomitant]
     Active Substance: OMEGA-3 FATTY ACIDS
  2. VITAMIN C [Concomitant]
     Active Substance: ASCORBIC ACID
  3. FOLIC ACID. [Concomitant]
     Active Substance: FOLIC ACID
  4. FLAXSEED [Concomitant]
     Active Substance: FLAX SEED
  5. OMEGA 6 [Concomitant]
  6. OMEGA 9 [Concomitant]
  7. LO LOESTRINE FE [Concomitant]
  8. PRENATAL VITAMINS [Concomitant]
     Active Substance: VITAMINS
  9. MAGNESIUM [Concomitant]
     Active Substance: MAGNESIUM
  10. RIBOFLAVIN [Concomitant]
     Active Substance: RIBOFLAVIN
  11. PROGESTERONE MICRO 100 MG [Suspect]
     Active Substance: PROGESTERONE
     Indication: MENSTRUATION IRREGULAR
     Route: 048
     Dates: start: 20190801, end: 20200114
  12. OIL OF OREGANO [Concomitant]

REACTIONS (6)
  - Thrombosis [None]
  - Blood pressure measurement [None]
  - Migraine [None]
  - Arthralgia [None]
  - Angiopathy [None]
  - Osteochondrosis [None]

NARRATIVE: CASE EVENT DATE: 20190923
